FAERS Safety Report 9767397 (Version 1)
Quarter: 2013Q4

REPORT INFORMATION
  Report Type: Spontaneous
  Country: GB (occurrence: GB)
  Receive Date: 20131217
  Receipt Date: 20131217
  Transmission Date: 20140711
  Serious: Yes (Hospitalization, Other)
  Sender: FDA-Public Use
  Company Number: GB-TEVA-450085ISR

PATIENT
  Age: 41 Year
  Sex: Male
  Weight: 80 kg

DRUGS (1)
  1. TRAMADOL [Suspect]
     Indication: POSTOPERATIVE HERNIA
     Route: 048

REACTIONS (1)
  - Psychotic behaviour [Recovered/Resolved]
